FAERS Safety Report 7548590-4 (Version None)
Quarter: 2011Q2

REPORT INFORMATION
  Report Type: 
  Country: None (occurrence: None)
  Receive Date: 20110615
  Receipt Date: 20110606
  Transmission Date: 20111010
  Serious: Yes (Death, Life-Threatening, Other)
  Sender: FDA-Public Use
  Company Number: JP-MPIJNJ-2011-01695

PATIENT

DRUGS (3)
  1. LASIX [Concomitant]
     Indication: RENAL FAILURE CHRONIC
     Dosage: UNK
     Dates: start: 20110402, end: 20110421
  2. VELCADE [Suspect]
     Indication: MULTIPLE MYELOMA
     Dosage: 1.65 MG, UNK
     Route: 042
     Dates: start: 20110329
  3. DEXAMETHASONE [Concomitant]
     Indication: MULTIPLE MYELOMA
     Dosage: 8 MG, UNK
     Route: 048
     Dates: start: 20110329, end: 20110406

REACTIONS (5)
  - NON-CARDIOGENIC PULMONARY OEDEMA [None]
  - PLEURAL EFFUSION [None]
  - PYREXIA [None]
  - HYPERTENSION [None]
  - RESPIRATORY FAILURE [None]
